FAERS Safety Report 7761875-1 (Version None)
Quarter: 2011Q3

REPORT INFORMATION
  Report Type: 
  Country: None (occurrence: None)
  Receive Date: 20110919
  Receipt Date: 20110919
  Transmission Date: 20111222
  Serious: Yes (Hospitalization)
  Sender: FDA-Public Use
  Company Number: None

PATIENT
  Age: 46 Year
  Sex: Female
  Weight: 95.7 kg

DRUGS (3)
  1. CARBOPLATIN [Suspect]
     Indication: BREAST CANCER
     Dosage: CARBOPLATIN 900MG Q3W IV
     Route: 042
     Dates: start: 20110630, end: 20110901
  2. AVASTIN [Concomitant]
  3. ABRAXANE [Suspect]
     Indication: BREAST CANCER
     Dosage: ABRAXANE 203MG QW IV
     Route: 042
     Dates: start: 20110613, end: 20110915

REACTIONS (5)
  - HAEMOGLOBIN DECREASED [None]
  - DECREASED APPETITE [None]
  - ELECTROLYTE IMBALANCE [None]
  - SYNCOPE [None]
  - DEHYDRATION [None]
